FAERS Safety Report 16280364 (Version 1)
Quarter: 2019Q2

REPORT INFORMATION
  Report Type: Report from Study
  Country: US (occurrence: US)
  Receive Date: 20190507
  Receipt Date: 20190507
  Transmission Date: 20190711
  Serious: Yes (Other)
  Sender: FDA-Public Use
  Company Number: US-CIPLA LTD.-2019US03025

PATIENT

DRUGS (4)
  1. ALISERTIB [Suspect]
     Active Substance: ALISERTIB
     Indication: COLON CANCER
     Dosage: 10 MILLIGRAM, BID, ON DAYS 1-3 (DOSE LEVEL 1)
     Route: 065
  2. OXALIPLATIN. [Suspect]
     Active Substance: OXALIPLATIN
     Indication: COLON CANCER
     Dosage: 85 MICROGRAM/SQ. METER, ON DAY 2
     Route: 065
  3. 5-FU                               /00098801/ [Suspect]
     Active Substance: FLUOROURACIL
     Indication: COLON CANCER
     Dosage: 2400 MICROGRAM/SQ. METER, ON DAYS 2-4 IN 14-DAY CYCLES
  4. LEUCOVORIN                         /00566701/ [Suspect]
     Active Substance: LEUCOVORIN
     Indication: COLON CANCER
     Dosage: 400 MICROGRAM/SQ. METER, ON DAY 2
     Route: 065

REACTIONS (1)
  - Malignant neoplasm progression [Unknown]
